FAERS Safety Report 7507480-3 (Version None)
Quarter: 2011Q2

REPORT INFORMATION
  Report Type: 
  Country: None (occurrence: None)
  Receive Date: 20110526
  Receipt Date: 20110228
  Transmission Date: 20111010
  Serious: No
  Sender: FDA-Public Use
  Company Number: US-MYLANLABS-2011S1003714

PATIENT
  Age: 61 Year
  Sex: Female

DRUGS (6)
  1. ADVAIR DISKUS 100/50 [Concomitant]
  2. WARFARIN SODIUM [Concomitant]
  3. VALACYCLOVIR HYDROCHLORIDE [Suspect]
     Indication: HERPES VIRUS INFECTION
     Route: 048
     Dates: start: 20101101, end: 20110201
  4. ALENDRONATE SODIUM [Concomitant]
  5. PROGRAF [Concomitant]
  6. SPIRIVA [Concomitant]

REACTIONS (2)
  - DRUG INEFFECTIVE [None]
  - HERPES VIRUS INFECTION [None]
